FAERS Safety Report 7023653-0 (Version None)
Quarter: 2010Q3

REPORT INFORMATION
  Report Type: 
  Country: None (occurrence: None)
  Receive Date: 20100929
  Receipt Date: 20100929
  Transmission Date: 20110219
  Serious: No
  Sender: FDA-Public Use
  Company Number: None

PATIENT
  Sex: Female
  Weight: 90.1 kg

DRUGS (2)
  1. CISPLATIN [Suspect]
     Dosage: 162 MG
  2. ETOPOSIDE [Suspect]
     Dosage: 609 MG

REACTIONS (1)
  - NEUTROPHIL COUNT DECREASED [None]
